FAERS Safety Report 8609254-9 (Version None)
Quarter: 2012Q3

REPORT INFORMATION
  Report Type: 
  Country: None (occurrence: None)
  Receive Date: 20120821
  Receipt Date: 20120814
  Transmission Date: 20120928
  Serious: Yes (Hospitalization)
  Sender: FDA-Public Use
  Company Number: NZ-B.I. PHARMACEUTICALS,INC./RIDGEFIELD-2012-AU-01434AU

PATIENT
  Age: 84 Year
  Sex: Female

DRUGS (5)
  1. PRADAXA [Suspect]
     Indication: ATRIAL FLUTTER
  2. SIMVASTATIN [Concomitant]
     Indication: HYPERLIPIDAEMIA
     Dosage: 20 MG
     Route: 048
  3. METOPROLOL TARTRATE [Concomitant]
     Indication: TRANSIENT ISCHAEMIC ATTACK
     Dosage: 47.5 MG
     Route: 048
     Dates: start: 20120711
  4. ACETAMINOPHEN [Concomitant]
     Indication: PAIN
     Dosage: 4 G
     Route: 048
  5. PRADAXA [Suspect]
     Indication: ATRIAL FIBRILLATION
     Dosage: 220 MG
     Route: 048
     Dates: start: 20120711, end: 20120724

REACTIONS (5)
  - BACK PAIN [None]
  - ARTHRALGIA [None]
  - MYALGIA [None]
  - PYREXIA [None]
  - HYPERHIDROSIS [None]
